FAERS Safety Report 12527047 (Version 1)
Quarter: 2016Q3

REPORT INFORMATION
  Report Type: Spontaneous
  Country: DE (occurrence: DE)
  Receive Date: 20160705
  Receipt Date: 20160705
  Transmission Date: 20161109
  Serious: Yes (Disabling)
  Sender: FDA-Public Use
  Company Number: DE-GLAXOSMITHKLINE-DE2016GSK091613

PATIENT
  Sex: Female
  Weight: 40 kg

DRUGS (1)
  1. DUAC [Suspect]
     Active Substance: BENZOYL PEROXIDE\CLINDAMYCIN PHOSPHATE
     Indication: ACNE
     Dosage: UNK, APPROXIMATELY  ? YEAR

REACTIONS (2)
  - Skin discolouration [Not Recovered/Not Resolved]
  - Pigmentation disorder [Not Recovered/Not Resolved]
